FAERS Safety Report 4568170-2 (Version None)
Quarter: 2005Q1

REPORT INFORMATION
  Report Type: 
  Country: None (occurrence: None)
  Receive Date: 20050128
  Receipt Date: 20050114
  Transmission Date: 20050727
  Serious: Yes (Hospitalization)
  Sender: FDA-Public Use
  Company Number: 25953

PATIENT
  Age: 76 Year
  Sex: Male

DRUGS (1)
  1. ALDARA [Suspect]
     Dosage: 3 APPLICATIONS WEEKLY (1 DOSAGE FORMS, 3 IN 1 WEEK(S)), TOPICAL
     Route: 061
     Dates: start: 20040914, end: 20041007

REACTIONS (2)
  - LEUKOPENIA [None]
  - THROMBOCYTOPENIA [None]
